FAERS Safety Report 23035347 (Version 3)
Quarter: 2023Q4

REPORT INFORMATION
  Report Type: Report from Study
  Country: US (occurrence: US)
  Receive Date: 20231005
  Receipt Date: 20231218
  Transmission Date: 20240110
  Serious: No
  Sender: FDA-Public Use
  Company Number: US-ACADIA PHARMACEUTICALS INC.-ACA-2023-TRF-004014

PATIENT
  Age: 37 Year
  Sex: Female

DRUGS (6)
  1. DAYBUE [Suspect]
     Active Substance: TROFINETIDE
     Indication: Rett syndrome
     Dosage: 5 MILLILITER, BID
     Route: 048
     Dates: start: 20230910
  2. DAYBUE [Suspect]
     Active Substance: TROFINETIDE
     Dosage: 15 MILLILITER, BID
     Route: 048
  3. DAYBUE [Suspect]
     Active Substance: TROFINETIDE
     Dosage: 10 MILLILITER, BID
     Route: 048
     Dates: start: 20231013
  4. DAYBUE [Suspect]
     Active Substance: TROFINETIDE
     Dosage: 15 MILLILITER, BID
     Route: 048
  5. DAYBUE [Suspect]
     Active Substance: TROFINETIDE
     Dosage: 10 MILLILITER, BID
     Route: 048
  6. DAYBUE [Suspect]
     Active Substance: TROFINETIDE
     Dosage: 12.5 MILLILITER BID
     Route: 048
     Dates: start: 20231113

REACTIONS (15)
  - Musculoskeletal stiffness [Not Recovered/Not Resolved]
  - Underdose [Not Recovered/Not Resolved]
  - Musculoskeletal stiffness [Recovered/Resolved]
  - Constipation [Recovered/Resolved]
  - Mood swings [Recovered/Resolved]
  - Mobility decreased [Not Recovered/Not Resolved]
  - Agitation [Recovered/Resolved]
  - Crying [Recovered/Resolved]
  - Somnolence [Not Recovered/Not Resolved]
  - Hunger [Not Recovered/Not Resolved]
  - Prescribed underdose [Not Recovered/Not Resolved]
  - Insomnia [Unknown]
  - Tooth abscess [Unknown]
  - Fatigue [Recovered/Resolved]
  - Diarrhoea [Recovering/Resolving]

NARRATIVE: CASE EVENT DATE: 20230911
